FAERS Safety Report 22026497 (Version 1)
Quarter: 2023Q1

REPORT INFORMATION
  Report Type: Spontaneous
  Country: US (occurrence: None)
  Receive Date: 20230223
  Receipt Date: 20230223
  Transmission Date: 20230418
  Serious: No
  Sender: FDA-Public Use
  Company Number: US-ROCHE-3182479

PATIENT
  Age: 15 Year
  Sex: Female

DRUGS (8)
  1. XOLAIR [Suspect]
     Active Substance: OMALIZUMAB
     Indication: Urticaria
     Dosage: TAKES 2 SYRINGES OF 150 MG (TOTAL OF 300 MG), LAST DOSE OF XOLAIR WAS ON 19/AUG/2022
     Route: 058
     Dates: start: 2021
  2. XOLAIR [Suspect]
     Active Substance: OMALIZUMAB
  3. XOLAIR [Suspect]
     Active Substance: OMALIZUMAB
  4. CLARITIN [Concomitant]
     Active Substance: LORATADINE
     Dosage: IN MORNING
     Route: 048
  5. XYZAL [Concomitant]
     Active Substance: LEVOCETIRIZINE DIHYDROCHLORIDE
     Indication: Urticaria
     Route: 048
  6. FAMOTIDINE [Concomitant]
     Active Substance: FAMOTIDINE
     Indication: Urticaria
     Route: 048
  7. IBUPROFEN [Concomitant]
     Active Substance: IBUPROFEN
     Dosage: BEGINNING OF MIGRAINES IF NEEDED
     Route: 048
  8. IBUPROFEN [Concomitant]
     Active Substance: IBUPROFEN
     Dosage: BAD MIGRAINES
     Route: 048

REACTIONS (4)
  - Device issue [Unknown]
  - Underdose [Unknown]
  - Wrong technique in product usage process [Unknown]
  - Urticaria [Recovering/Resolving]

NARRATIVE: CASE EVENT DATE: 20220916
